FAERS Safety Report 24991778 (Version 1)
Quarter: 2025Q1

REPORT INFORMATION
  Report Type: Spontaneous
  Country: PL (occurrence: PL)
  Receive Date: 20250220
  Receipt Date: 20250220
  Transmission Date: 20250409
  Serious: Yes (Hospitalization, Other)
  Sender: SANDOZ
  Company Number: PL-AMGEN-POLSP2025027564

PATIENT
  Age: 24 Year
  Sex: Male

DRUGS (1)
  1. ADALIMUMAB [Suspect]
     Active Substance: ADALIMUMAB
     Indication: Juvenile idiopathic arthritis
     Route: 065

REACTIONS (4)
  - Arthritis reactive [Recovering/Resolving]
  - Diarrhoea [Unknown]
  - Purulent discharge [Unknown]
  - Infection [Unknown]

NARRATIVE: CASE EVENT DATE: 20230101
